FAERS Safety Report 7504486-5 (Version None)
Quarter: 2011Q2

REPORT INFORMATION
  Report Type: 
  Country: None (occurrence: None)
  Receive Date: 20110525
  Receipt Date: 20110518
  Transmission Date: 20111010
  Serious: Yes (Hospitalization)
  Sender: FDA-Public Use
  Company Number: US-B.I. PHARMACEUTICALS,INC./RIDGEFIELD-2011-BP-10593BP

PATIENT
  Age: 85 Year
  Sex: Female
  Weight: 37 kg

DRUGS (6)
  1. COZAAR [Concomitant]
  2. SPIRONOLACTONE [Concomitant]
  3. TOPROL-XL [Concomitant]
  4. LASIX [Concomitant]
  5. HYDROCHLOROTHIAZIDE [Concomitant]
  6. PRADAXA [Suspect]
     Indication: ATRIAL FIBRILLATION
     Dosage: 150 MG
     Dates: start: 20110201, end: 20110309

REACTIONS (1)
  - GASTROINTESTINAL HAEMORRHAGE [None]
